FAERS Safety Report 21189582 (Version 1)
Quarter: 2022Q3

REPORT INFORMATION
  Report Type: Spontaneous
  Country: US (occurrence: None)
  Receive Date: 20220808
  Receipt Date: 20220808
  Transmission Date: 20221027
  Serious: No
  Sender: FDA-Public Use
  Company Number: None

PATIENT
  Sex: Female

DRUGS (3)
  1. PIQRAY [Suspect]
     Active Substance: ALPELISIB
     Indication: Vascular malformation
     Dosage: 200 + 50 MG ORAL??TAKE ONE 50MG TABLET BY MOUTH EVERY DAY, DISCARD 200MG TABLETS ?
     Route: 048
     Dates: start: 20220719
  2. CELEBREX [Concomitant]
     Active Substance: CELECOXIB
  3. XARELTO TAB [Concomitant]

REACTIONS (1)
  - Surgery [None]
